FAERS Safety Report 13275478 (Version 1)
Quarter: 2017Q1

REPORT INFORMATION
  Report Type: Spontaneous
  Country: US (occurrence: US)
  Receive Date: 20170228
  Receipt Date: 20170228
  Transmission Date: 20170428
  Serious: No
  Sender: FDA-Public Use
  Company Number: US-ELI_LILLY_AND_COMPANY-US201702010720

PATIENT
  Sex: Female

DRUGS (1)
  1. FORTEO [Suspect]
     Active Substance: TERIPARATIDE
     Indication: OSTEOPOROSIS
     Dosage: UNK, WEEKLY (1/W)
     Route: 065
     Dates: start: 201611

REACTIONS (7)
  - Sinusitis [Unknown]
  - Back pain [Unknown]
  - Nausea [Unknown]
  - Vertigo [Unknown]
  - Dizziness postural [Unknown]
  - Influenza [Unknown]
  - Muscle spasms [Unknown]

NARRATIVE: CASE EVENT DATE: 201702
